FAERS Safety Report 25774860 (Version 2)
Quarter: 2025Q4

REPORT INFORMATION
  Report Type: Spontaneous
  Country: RU (occurrence: RU)
  Receive Date: 20250908
  Receipt Date: 20251209
  Transmission Date: 20260118
  Serious: Yes (Death, Other)
  Sender: BRISTOL-MYERS SQUIBB COMPANY
  Company Number: RU-BRISTOL-MYERS SQUIBB COMPANY-2025-123618

PATIENT
  Age: 88 Year
  Sex: Female

DRUGS (5)
  1. NIVOLUMAB [Suspect]
     Active Substance: NIVOLUMAB
     Indication: Hepatic cyst
     Dosage: 32 CYCLES
     Route: 042
     Dates: start: 201907, end: 202204
  2. NIVOLUMAB [Suspect]
     Active Substance: NIVOLUMAB
     Indication: Colectomy
  3. NIVOLUMAB [Suspect]
     Active Substance: NIVOLUMAB
     Indication: Lymphadenectomy
  4. NIVOLUMAB [Suspect]
     Active Substance: NIVOLUMAB
     Indication: Colon cancer
  5. NIVOLUMAB [Suspect]
     Active Substance: NIVOLUMAB
     Indication: Adenocarcinoma

REACTIONS (3)
  - Cardiovascular disorder [Fatal]
  - Abdominal pain [Unknown]
  - Malignant melanoma [Unknown]

NARRATIVE: CASE EVENT DATE: 20190901
